FAERS Safety Report 5308611-6 (Version None)
Quarter: 2007Q2

REPORT INFORMATION
  Report Type: 
  Country: None (occurrence: None)
  Receive Date: 20070426
  Receipt Date: 20070420
  Transmission Date: 20071010
  Serious: Yes (Hospitalization)
  Sender: FDA-Public Use
  Company Number: US-MERCK-0704USA04779

PATIENT
  Sex: Female

DRUGS (7)
  1. JANUVIA [Suspect]
     Indication: DIABETES MELLITUS NON-INSULIN-DEPENDENT
     Route: 048
  2. AVANDIA [Concomitant]
     Route: 065
  3. GLUCOPHAGE [Concomitant]
     Route: 065
  4. LIPITOR [Concomitant]
     Route: 065
  5. LOTENSIN [Concomitant]
     Route: 065
  6. EFFEXOR [Concomitant]
     Route: 065
  7. REQUIP [Concomitant]
     Route: 065

REACTIONS (4)
  - BLOOD GLUCOSE INCREASED [None]
  - DIZZINESS [None]
  - FALL [None]
  - RADIUS FRACTURE [None]
